FAERS Safety Report 5923729-2 (Version None)
Quarter: 2008Q4

REPORT INFORMATION
  Report Type: 
  Country: None (occurrence: None)
  Receive Date: 20081020
  Receipt Date: 20081014
  Transmission Date: 20090506
  Serious: Yes (Hospitalization, Other)
  Sender: FDA-Public Use
  Company Number: B0542073A

PATIENT
  Age: 68 Year
  Sex: Female

DRUGS (3)
  1. MELPHALAN [Suspect]
     Indication: MULTIPLE MYELOMA
     Dosage: 14MG PER DAY
     Route: 048
     Dates: start: 20080326, end: 20080401
  2. PREDNISONE TAB [Suspect]
     Indication: MULTIPLE MYELOMA
     Dosage: 158MG PER DAY
     Route: 048
     Dates: start: 20080326, end: 20080329
  3. BLINDED TRIAL MEDICATION [Concomitant]
     Indication: MULTIPLE MYELOMA
     Dosage: 10MG PER DAY
     Route: 048
     Dates: start: 20080326

REACTIONS (5)
  - ACCIDENTAL OVERDOSE [None]
  - FEBRILE NEUTROPENIA [None]
  - ORAL HERPES [None]
  - RASH [None]
  - THROMBOCYTOPENIA [None]
